FAERS Safety Report 8587068-6 (Version None)
Quarter: 2012Q3

REPORT INFORMATION
  Report Type: 
  Country: None (occurrence: None)
  Receive Date: 20120810
  Receipt Date: 20120806
  Transmission Date: 20120928
  Serious: Yes (Hospitalization, Other)
  Sender: FDA-Public Use
  Company Number: AR-ROCHE-1036401

PATIENT
  Sex: Male

DRUGS (1)
  1. LUCENTIS [Suspect]
     Indication: MACULOPATHY
     Route: 050
     Dates: start: 20111201

REACTIONS (5)
  - DEPRESSION [None]
  - CATARACT [None]
  - VISUAL ACUITY REDUCED [None]
  - VISION BLURRED [None]
  - EYE HAEMORRHAGE [None]
